FAERS Safety Report 8361259-1 (Version None)
Quarter: 2012Q2

REPORT INFORMATION
  Report Type: 
  Country: None (occurrence: None)
  Receive Date: 20120515
  Receipt Date: 20120507
  Transmission Date: 20120825
  Serious: Yes (Disabling)
  Sender: FDA-Public Use
  Company Number: US-MERCK-1205USA01105

PATIENT
  Sex: Female

DRUGS (3)
  1. FOSAMAX [Suspect]
     Route: 048
     Dates: start: 20030301, end: 20090201
  2. FOSAMAX PLUS D [Suspect]
     Route: 048
     Dates: start: 20030305, end: 20090201
  3. FOSAMAX [Suspect]
     Route: 048
     Dates: start: 20030305, end: 20090201

REACTIONS (12)
  - OSTEOPOROSIS [None]
  - FEMUR FRACTURE [None]
  - ECONOMIC PROBLEM [None]
  - MENTAL DISORDER [None]
  - BONE DENSITY DECREASED [None]
  - BONE DISORDER [None]
  - MULTIPLE FRACTURES [None]
  - MULTIPLE INJURIES [None]
  - EMOTIONAL DISTRESS [None]
  - STRESS FRACTURE [None]
  - LOW TURNOVER OSTEOPATHY [None]
  - PAIN [None]
